FAERS Safety Report 5517112-1 (Version None)
Quarter: 2007Q4

REPORT INFORMATION
  Report Type: 
  Country: None (occurrence: None)
  Receive Date: 20071114
  Receipt Date: 20071109
  Transmission Date: 20080405
  Serious: Yes (Hospitalization)
  Sender: FDA-Public Use
  Company Number: A0693605A

PATIENT
  Age: 53 Year
  Sex: Female

DRUGS (2)
  1. AUGMENTIN '500' [Suspect]
     Indication: EAR INFECTION
     Dosage: 250MG THREE TIMES PER DAY
     Route: 048
     Dates: start: 19900401, end: 19900401
  2. NO CONCURRENT MEDICATION [Concomitant]

REACTIONS (16)
  - ALOPECIA [None]
  - ARTHRALGIA [None]
  - BLISTER [None]
  - BLOOD CHOLESTEROL INCREASED [None]
  - DANDRUFF [None]
  - DIABETES MELLITUS [None]
  - DIARRHOEA [None]
  - EYE PAIN [None]
  - GAIT DISTURBANCE [None]
  - HYPERSENSITIVITY [None]
  - IRRITABLE BOWEL SYNDROME [None]
  - NERVOUSNESS [None]
  - POLLAKIURIA [None]
  - SKIN DISCOLOURATION [None]
  - THERMAL BURN [None]
  - THIRST [None]
